FAERS Safety Report 10602567 (Version 1)
Quarter: 2014Q4

REPORT INFORMATION
  Report Type: Spontaneous
  Country: US (occurrence: US)
  Receive Date: 20141124
  Receipt Date: 20141124
  Transmission Date: 20150529
  Serious: No
  Sender: FDA-Public Use
  Company Number: US-NOVEN-14US009982

PATIENT
  Sex: Male

DRUGS (1)
  1. MINIVELLE [Suspect]
     Active Substance: ESTRADIOL
     Indication: PRODUCT USED FOR UNKNOWN INDICATION
     Dosage: 0.1 MG/DAY, ONCE
     Route: 062

REACTIONS (2)
  - Accidental exposure to product [Recovered/Resolved]
  - No adverse event [None]

NARRATIVE: CASE EVENT DATE: 201407
